FAERS Safety Report 10219744 (Version 1)
Quarter: 2014Q2

REPORT INFORMATION
  Report Type: Spontaneous
  Country: US (occurrence: US)
  Receive Date: 20140605
  Receipt Date: 20140605
  Transmission Date: 20141212
  Serious: No
  Sender: FDA-Public Use
  Company Number: US-BAYER-2014-067840

PATIENT
  Age: 67 Year
  Sex: Male

DRUGS (1)
  1. LEVITRA [Suspect]
     Dosage: 20 MG, UNK
     Route: 048
     Dates: end: 20140501

REACTIONS (5)
  - Hypersensitivity [None]
  - Flushing [None]
  - Head discomfort [None]
  - Drug ineffective [None]
  - Wrong technique in drug usage process [None]
